FAERS Safety Report 6492936-5 (Version None)
Quarter: 2009Q4

REPORT INFORMATION
  Report Type: 
  Country: None (occurrence: None)
  Receive Date: 20091209
  Receipt Date: 20091203
  Transmission Date: 20100525
  Serious: Yes (Death)
  Sender: FDA-Public Use
  Company Number: 2009US004285

PATIENT
  Age: 23 Year
  Sex: Female

DRUGS (2)
  1. PROGRAF [Suspect]
     Indication: ANAL FISTULA
  2. ADALIMUMAB (ADALIMUMAB) [Concomitant]

REACTIONS (3)
  - ANAL FISTULA [None]
  - CONDITION AGGRAVATED [None]
  - INTESTINAL ADENOCARCINOMA [None]
